FAERS Safety Report 21906128 (Version 1)
Quarter: 2023Q1

REPORT INFORMATION
  Report Type: Spontaneous
  Country: FR (occurrence: FR)
  Receive Date: 20230124
  Receipt Date: 20230124
  Transmission Date: 20230417
  Serious: Yes (Other)
  Sender: FDA-Public Use
  Company Number: FR-ViiV Healthcare Limited-64367

PATIENT
  Age: 67 Year
  Sex: Male

DRUGS (14)
  1. EDURANT [Suspect]
     Active Substance: RILPIVIRINE HYDROCHLORIDE
     Indication: Product used for unknown indication
     Dosage: UNK, QD
     Route: 048
     Dates: start: 201610, end: 2020
  2. TIVICAY [Suspect]
     Active Substance: DOLUTEGRAVIR SODIUM
     Indication: HIV infection
     Dosage: 2 DF, QD
     Route: 048
  3. TIVICAY [Suspect]
     Active Substance: DOLUTEGRAVIR SODIUM
     Dosage: 50 MG, QD
     Route: 048
     Dates: start: 201610
  4. TIVICAY [Suspect]
     Active Substance: DOLUTEGRAVIR SODIUM
     Dosage: 3 DF, QD
     Route: 048
  5. TIVICAY [Suspect]
     Active Substance: DOLUTEGRAVIR SODIUM
     Dosage: 1 DF, QD
     Route: 048
  6. TIVICAY [Suspect]
     Active Substance: DOLUTEGRAVIR SODIUM
     Dosage: 4 DF, QD
     Route: 048
  7. TIVICAY [Suspect]
     Active Substance: DOLUTEGRAVIR SODIUM
     Dosage: 0.5 DF, QD
     Route: 048
  8. TIVICAY [Suspect]
     Active Substance: DOLUTEGRAVIR SODIUM
     Dosage: 0.5 DF EVERY 2 DAYS
     Route: 048
  9. TIVICAY [Suspect]
     Active Substance: DOLUTEGRAVIR SODIUM
     Dosage: 50 MG, QD
     Route: 048
     Dates: start: 201612
  10. LAMIVUDINE [Suspect]
     Active Substance: LAMIVUDINE
     Indication: HIV infection
     Dosage: 1 DF, QD
     Route: 048
     Dates: start: 201612
  11. LAMIVUDINE [Suspect]
     Active Substance: LAMIVUDINE
     Dosage: 300 MG, QD
     Route: 048
     Dates: start: 201612
  12. LAMIVUDINE [Suspect]
     Active Substance: LAMIVUDINE
     Dosage: UNK UNK, QD
     Route: 048
     Dates: start: 2014
  13. LAMIVUDINE [Suspect]
     Active Substance: LAMIVUDINE
     Dosage: 0.5 DF EVERY 2 DAYS
     Route: 048
  14. ISENTRESS [Concomitant]
     Active Substance: RALTEGRAVIR POTASSIUM
     Indication: Product used for unknown indication
     Dosage: UNK, BID
     Route: 048
     Dates: start: 2014, end: 201610

REACTIONS (11)
  - Angina pectoris [Not Recovered/Not Resolved]
  - Headache [Unknown]
  - Discomfort [Unknown]
  - Sensation of blood flow [Unknown]
  - Cardiac disorder [Unknown]
  - Tinnitus [Not Recovered/Not Resolved]
  - Palpitations [Not Recovered/Not Resolved]
  - Feeling abnormal [Unknown]
  - Product communication issue [Unknown]
  - Incorrect dose administered [Unknown]
  - Intentional product misuse [Unknown]

NARRATIVE: CASE EVENT DATE: 20160101
